FAERS Safety Report 5264160-5 (Version None)
Quarter: 2007Q1

REPORT INFORMATION
  Report Type: 
  Country: None (occurrence: None)
  Receive Date: 20070313
  Receipt Date: 20070308
  Transmission Date: 20070707
  Serious: Yes (Death)
  Sender: FDA-Public Use
  Company Number: GB-BOEHRINGER INGELHEIM PHARMACEUTICALS, INC.-2007-UK-00809UK

PATIENT
  Sex: Male

DRUGS (1)
  1. VIRAMUNE [Suspect]
     Indication: ACQUIRED IMMUNODEFICIENCY SYNDROME

REACTIONS (1)
  - INTENTIONAL OVERDOSE [None]
